FAERS Safety Report 18123200 (Version 2)
Quarter: 2020Q3

REPORT INFORMATION
  Report Type: Report from Study
  Country: BR (occurrence: BR)
  Receive Date: 20200807
  Receipt Date: 20200901
  Transmission Date: 20201103
  Serious: Yes (Other)
  Sender: FDA-Public Use
  Company Number: BR-JNJFOC-20200748263

PATIENT
  Age: 5 Decade
  Sex: Female

DRUGS (5)
  1. SIMPONI [Suspect]
     Active Substance: GOLIMUMAB
     Indication: RHEUMATOID ARTHRITIS
     Route: 058
     Dates: start: 20140604
  2. NORTRIPTILINA [Concomitant]
  3. PIETRA ED [Concomitant]
  4. PANTOPRAZOLE [Concomitant]
     Active Substance: PANTOPRAZOLE
  5. NAPROXENO                          /00256201/ [Concomitant]
     Active Substance: NAPROXEN

REACTIONS (3)
  - Urethral cyst [Unknown]
  - Blister [Recovering/Resolving]
  - Urinary tract infection [Recovered/Resolved]
